FAERS Safety Report 23448833 (Version 2)
Quarter: 2024Q3

REPORT INFORMATION
  Report Type: Spontaneous
  Country: US (occurrence: US)
  Receive Date: 20240128
  Receipt Date: 20240716
  Transmission Date: 20241016
  Serious: No
  Sender: GLAXOSMITHKLINE
  Company Number: US-GLAXOSMITHKLINE-US2024008836

PATIENT
  Sex: Female
  Weight: 78 kg

DRUGS (2)
  1. ZEJULA [Suspect]
     Active Substance: NIRAPARIB
     Indication: Malignant peritoneal neoplasm
     Dosage: 300 MG, QD
     Dates: start: 20240105
  2. ZEJULA [Suspect]
     Active Substance: NIRAPARIB
     Dosage: 100 MG, TAKE 2 TABLETS ONCE DAILY
     Route: 048
     Dates: end: 20240607

REACTIONS (3)
  - Blood pressure fluctuation [Unknown]
  - Platelet count decreased [Unknown]
  - Multiple allergies [Unknown]
